FAERS Safety Report 9783180 (Version 1)
Quarter: 2013Q4

REPORT INFORMATION
  Report Type: Spontaneous
  Country: GB (occurrence: None)
  Receive Date: 20131223
  Receipt Date: 20131223
  Transmission Date: 20140711
  Serious: Yes (Other)
  Sender: FDA-Public Use
  Company Number: 2013AP010549

PATIENT
  Age: 60 Year
  Sex: Female

DRUGS (7)
  1. ALENDRONATE (ALENDRONATE SODIUM) [Suspect]
     Indication: OSTEOPOROSIS
     Route: 048
     Dates: start: 1998, end: 201304
  2. RED CLOVER (TRIFOLIUM PRATENSE) [Concomitant]
  3. TEMAZEPAM (TEMAZEPAM) [Concomitant]
  4. VITAMIN C [Concomitant]
  5. CALCEOS (LEKOVIT CA) [Concomitant]
  6. FERROUS SULFATE (FERROUS SULFATE) [Concomitant]
  7. GLUCOSAMINE (GLUCOSAMINE) [Concomitant]

REACTIONS (3)
  - Osteonecrosis of jaw [None]
  - Oral disorder [None]
  - Pain [None]
